FAERS Safety Report 9496505 (Version 1)
Quarter: 2013Q3

REPORT INFORMATION
  Report Type: Spontaneous
  Country: US (occurrence: US)
  Receive Date: 20130904
  Receipt Date: 20130904
  Transmission Date: 20140515
  Serious: Yes (Other)
  Sender: FDA-Public Use
  Company Number: PHEH2013US018522

PATIENT
  Sex: Female

DRUGS (2)
  1. HYDROCHLOROTHIAZIDE,VALSARTAN [Suspect]
     Dosage: 1 DF, (160 MG VALS /25 MG HCTZ)
     Dates: end: 20130208
  2. DIOVAN [Suspect]
     Dosage: 320 MG, UNK
     Dates: start: 20130208

REACTIONS (2)
  - Menorrhagia [Unknown]
  - Uterine leiomyoma [Unknown]
